FAERS Safety Report 9268648 (Version 2)
Quarter: 2013Q2

REPORT INFORMATION
  Report Type: Spontaneous
  Country: US (occurrence: US)
  Receive Date: 20130502
  Receipt Date: 20130603
  Transmission Date: 20140414
  Serious: Yes (Hospitalization, Other)
  Sender: FDA-Public Use
  Company Number: US-B.I. PHARMACEUTICALS,INC./RIDGEFIELD-2013-BI-12202BP

PATIENT
  Age: 68 Year
  Sex: Female
  Weight: 104.33 kg

DRUGS (12)
  1. PRADAXA [Suspect]
     Indication: ANTICOAGULANT THERAPY
     Dosage: 300 MG
     Route: 048
     Dates: start: 20111130, end: 20111231
  2. ASA [Concomitant]
     Dosage: 325 MG
     Route: 048
  3. CLONODINE [Concomitant]
     Dosage: 0.6 MG
     Route: 048
  4. DIGOXIN [Concomitant]
     Dosage: 0.125 MG
     Route: 048
  5. GLIPIZIDE [Concomitant]
     Dosage: 5 MG
     Route: 048
  6. ISOSORBIDE MONONITRATE [Concomitant]
     Dosage: 30 MG
     Route: 048
  7. KCL [Concomitant]
     Dosage: 10 MEQ
     Route: 048
  8. LISINOPRIL [Concomitant]
     Dosage: 20 MG
     Route: 048
  9. METOPROLOL [Concomitant]
     Dosage: 100 MG
     Route: 048
  10. PRAVASTATIN [Concomitant]
     Dosage: 40 MG
     Route: 048
  11. TRIAMTEREN/HCTZ [Concomitant]
     Route: 048
  12. VIT D [Concomitant]
     Dosage: 7142.8571 U
     Route: 048

REACTIONS (1)
  - Upper gastrointestinal haemorrhage [Unknown]
